FAERS Safety Report 23323774 (Version 1)
Quarter: 2023Q4

REPORT INFORMATION
  Report Type: Other
  Country: US (occurrence: None)
  Receive Date: 20231220
  Receipt Date: 20231220
  Transmission Date: 20240109
  Serious: Yes (Hospitalization)
  Sender: FDA-Public Use
  Company Number: US-ROCHE-3438855

PATIENT
  Sex: Female

DRUGS (16)
  1. RITUXIMAB [Suspect]
     Active Substance: RITUXIMAB
     Indication: Thrombocytopenia
     Route: 041
  2. RITUXIMAB [Suspect]
     Active Substance: RITUXIMAB
     Indication: Haemolytic anaemia
  3. MYCOPHENOLATE MOFETIL [Suspect]
     Active Substance: MYCOPHENOLATE MOFETIL
     Indication: Systemic lupus erythematosus
     Route: 065
  4. NIFEDIPINE [Concomitant]
     Active Substance: NIFEDIPINE
  5. NIFEDIPINE [Concomitant]
     Active Substance: NIFEDIPINE
  6. AZATHIOPRINE [Concomitant]
     Active Substance: AZATHIOPRINE
     Dosage: EVERY MORNING
  7. AZATHIOPRINE [Concomitant]
     Active Substance: AZATHIOPRINE
     Dosage: EVERY EVENING
  8. ASPIRIN [Concomitant]
     Active Substance: ASPIRIN
  9. SOLU-MEDROL [Concomitant]
     Active Substance: METHYLPREDNISOLONE SODIUM SUCCINATE
  10. SOLU-MEDROL [Concomitant]
     Active Substance: METHYLPREDNISOLONE SODIUM SUCCINATE
     Route: 042
  11. PREDNISONE [Concomitant]
     Active Substance: PREDNISONE
     Route: 048
  12. ENOXAPARIN [Concomitant]
     Active Substance: ENOXAPARIN
     Route: 058
  13. MAGNESIUM [Concomitant]
     Active Substance: MAGNESIUM
     Route: 042
  14. WARFARIN [Concomitant]
     Active Substance: WARFARIN
  15. HYDROXYCHLOROQUINE [Concomitant]
     Active Substance: HYDROXYCHLOROQUINE
     Indication: Systemic lupus erythematosus
  16. FUROSEMIDE [Concomitant]
     Active Substance: FUROSEMIDE
     Route: 042

REACTIONS (3)
  - Febrile neutropenia [Unknown]
  - Postoperative wound infection [Unknown]
  - Staphylococcal infection [Unknown]
